FAERS Safety Report 13412104 (Version 4)
Quarter: 2023Q4

REPORT INFORMATION
  Report Type: Spontaneous
  Country: US (occurrence: US)
  Receive Date: 20170406
  Receipt Date: 20231109
  Transmission Date: 20240110
  Serious: Yes (Other)
  Sender: FDA-Public Use
  Company Number: US-JNJFOC-20170315925

PATIENT
  Sex: Male
  Weight: 72.64 kg

DRUGS (13)
  1. RISPERDAL [Suspect]
     Active Substance: RISPERIDONE
     Indication: Bipolar disorder
     Route: 048
     Dates: start: 20061011, end: 20070822
  2. RISPERDAL [Suspect]
     Active Substance: RISPERIDONE
     Indication: Impulse-control disorder
     Route: 048
     Dates: start: 20071008, end: 20071107
  3. RISPERDAL [Suspect]
     Active Substance: RISPERIDONE
     Indication: Oppositional defiant disorder
     Route: 048
     Dates: start: 20111031, end: 20111229
  4. RISPERDAL [Suspect]
     Active Substance: RISPERIDONE
     Indication: Autism spectrum disorder
     Route: 048
     Dates: start: 20130530, end: 20131202
  5. RISPERDAL [Suspect]
     Active Substance: RISPERIDONE
     Indication: Schizoaffective disorder
     Route: 048
     Dates: start: 20131202, end: 20141015
  6. RISPERDAL CONSTA [Suspect]
     Active Substance: RISPERIDONE
     Indication: Bipolar disorder
     Dosage: VARYING DOSES OF 25 MG, 37.5 MG AND 50 MG
     Route: 030
     Dates: start: 20060929, end: 20071107
  7. RISPERDAL CONSTA [Suspect]
     Active Substance: RISPERIDONE
     Indication: Impulse-control disorder
     Dosage: VARYING DOSES OF 25 MG, 37.5 MG AND 50 MG
     Route: 030
     Dates: start: 20120903, end: 20130114
  8. RISPERDAL CONSTA [Suspect]
     Active Substance: RISPERIDONE
     Indication: Oppositional defiant disorder
  9. RISPERDAL CONSTA [Suspect]
     Active Substance: RISPERIDONE
     Indication: Autism spectrum disorder
  10. RISPERDAL CONSTA [Suspect]
     Active Substance: RISPERIDONE
     Indication: Schizoaffective disorder
  11. RISPERIDONE [Suspect]
     Active Substance: RISPERIDONE
     Indication: Product used for unknown indication
     Route: 065
  12. ABILIFY [Concomitant]
     Active Substance: ARIPIPRAZOLE
     Indication: Product used for unknown indication
  13. THORAZINE [Concomitant]
     Active Substance: CHLORPROMAZINE
     Indication: Product used for unknown indication

REACTIONS (5)
  - Gynaecomastia [Unknown]
  - Emotional disorder [Unknown]
  - Weight increased [Recovering/Resolving]
  - Dystonia [Recovered/Resolved]
  - Eye movement disorder [Recovered/Resolved]
